FAERS Safety Report 10736928 (Version 1)
Quarter: 2015Q1

REPORT INFORMATION
  Report Type: Report from Study
  Country: US (occurrence: US)
  Receive Date: 20150126
  Receipt Date: 20150126
  Transmission Date: 20150721
  Serious: Yes (Hospitalization)
  Sender: FDA-Public Use
  Company Number: US-ACTELION-A-NJ2014-98375

PATIENT
  Age: 52 Year
  Sex: Female

DRUGS (6)
  1. COUMADIN [Concomitant]
     Active Substance: WARFARIN SODIUM
  2. BUMEX [Concomitant]
     Active Substance: BUMETANIDE
  3. HEPARIN [Concomitant]
     Active Substance: HEPARIN SODIUM
  4. TRACLEER [Suspect]
     Active Substance: BOSENTAN\BOSENTAN MONOHYDRATE
     Indication: PULMONARY ARTERIAL HYPERTENSION
     Dosage: 125 MG, BID
     Route: 048
     Dates: start: 2011
  5. AMIODARONE [Concomitant]
     Active Substance: AMIODARONE
  6. REMODULIN [Concomitant]
     Active Substance: TREPROSTINIL

REACTIONS (9)
  - Cardiac failure high output [Unknown]
  - Fluid retention [Recovered/Resolved]
  - Fluid overload [Recovered/Resolved]
  - Anaemia [Recovering/Resolving]
  - Cardiac septal defect residual shunt [Unknown]
  - Malaise [Unknown]
  - Right ventricular failure [Recovered/Resolved]
  - Dyspnoea [Recovered/Resolved]
  - Cardiac failure [Recovered/Resolved]

NARRATIVE: CASE EVENT DATE: 201404
